FAERS Safety Report 24445250 (Version 1)
Quarter: 2024Q4

REPORT INFORMATION
  Report Type: Spontaneous
  Country: US (occurrence: US)
  Receive Date: 20241016
  Receipt Date: 20241016
  Transmission Date: 20250115
  Serious: Yes (Other)
  Sender: MERCK
  Company Number: US-MFDS-2021000061-2410USA005031

PATIENT
  Sex: Female

DRUGS (7)
  1. JANUVIA [Suspect]
     Active Substance: SITAGLIPTIN PHOSPHATE
     Indication: Type 2 diabetes mellitus
     Dosage: 100 MILLIGRAM ONCE DAILY
     Route: 048
     Dates: start: 20240725, end: 202407
  2. JANUVIA [Suspect]
     Active Substance: SITAGLIPTIN PHOSPHATE
     Dosage: 50 MG, QD
     Route: 048
     Dates: start: 202407
  3. JANUMET [Suspect]
     Active Substance: METFORMIN HYDROCHLORIDE\SITAGLIPTIN PHOSPHATE
     Dosage: UNK
     Route: 048
  4. ACTOS [Suspect]
     Active Substance: PIOGLITAZONE HYDROCHLORIDE
     Dosage: UNK
  5. OZEMPIC [Suspect]
     Active Substance: SEMAGLUTIDE
     Dosage: UNK
  6. RYBELSUS [Suspect]
     Active Substance: SEMAGLUTIDE
     Dosage: UNK
  7. BRENZAVVY [Concomitant]
     Active Substance: BEXAGLIFLOZIN
     Dosage: 20 MILLIGRAM

REACTIONS (5)
  - Abdominal hernia repair [Unknown]
  - Oesophagogastric fundoplasty [Unknown]
  - Fallopian tube cancer stage III [Unknown]
  - Adenocarcinoma [Unknown]
  - Hiatus hernia [Unknown]

NARRATIVE: CASE EVENT DATE: 20240101
